FAERS Safety Report 10050264 (Version 1)
Quarter: 2014Q2

REPORT INFORMATION
  Report Type: Spontaneous
  Country: IT (occurrence: IT)
  Receive Date: 20140401
  Receipt Date: 20140401
  Transmission Date: 20141212
  Serious: Yes (Hospitalization)
  Sender: FDA-Public Use
  Company Number: IT-JNJFOC-20140316120

PATIENT
  Age: 48 Year
  Sex: Male

DRUGS (3)
  1. REMICADE [Suspect]
     Indication: CROHN^S DISEASE
     Route: 042
     Dates: start: 20120301, end: 20140218
  2. CORTICOSTEROIDS [Concomitant]
     Indication: PREMEDICATION
     Route: 065
  3. CHLORPHENIRAMINE [Concomitant]
     Indication: PREMEDICATION
     Route: 065

REACTIONS (4)
  - Respiratory distress [Recovered/Resolved]
  - Cough [Recovered/Resolved]
  - Erythema [Recovered/Resolved]
  - Infusion related reaction [Recovered/Resolved]
